FAERS Safety Report 18579251 (Version 1)
Quarter: 2020Q4

REPORT INFORMATION
  Report Type: Spontaneous
  Country: US (occurrence: US)
  Receive Date: 20201204
  Receipt Date: 20201204
  Transmission Date: 20210114
  Serious: Yes (Other)
  Sender: FDA-Public Use
  Company Number: None

PATIENT
  Age: 53 Year
  Sex: Female

DRUGS (3)
  1. ACETAMINOPHEN 325MG [Concomitant]
     Dates: start: 20201130
  2. DIPHENHYDRAMINE CHEW 6.25MG [Concomitant]
     Dates: start: 20201130
  3. GAMUNEX-C [Suspect]
     Active Substance: HUMAN IMMUNOGLOBULIN G
     Indication: STIFF PERSON SYNDROME
     Route: 042
     Dates: start: 20201130, end: 20201130

REACTIONS (3)
  - Vomiting [None]
  - Headache [None]
  - Drug intolerance [None]

NARRATIVE: CASE EVENT DATE: 20201130
